FAERS Safety Report 6740779-7 (Version None)
Quarter: 2010Q2

REPORT INFORMATION
  Report Type: 
  Country: None (occurrence: None)
  Receive Date: 20100525
  Receipt Date: 20100525
  Transmission Date: 20101027
  Serious: Yes (Hospitalization)
  Sender: FDA-Public Use
  Company Number: None

PATIENT
  Age: 71 Year
  Sex: Female
  Weight: 72.6 kg

DRUGS (1)
  1. EVEROLIMUS) [Suspect]
     Indication: WALDENSTROM'S MACROGLOBULINAEMIA
     Dosage: 5 MG, ORAL
     Route: 048
     Dates: start: 20100108, end: 20100513

REACTIONS (1)
  - SPINAL COMPRESSION FRACTURE [None]
